FAERS Safety Report 12920427 (Version 1)
Quarter: 2016Q4

REPORT INFORMATION
  Report Type: Spontaneous
  Country: US (occurrence: US)
  Receive Date: 20161108
  Receipt Date: 20161108
  Transmission Date: 20170207
  Serious: Yes (Congenital Anomaly, Other)
  Sender: FDA-Public Use
  Company Number: PHEH2016US028950

PATIENT
  Sex: Female

DRUGS (2)
  1. ZOFRAN [Suspect]
     Active Substance: ONDANSETRON HYDROCHLORIDE
     Indication: FOETAL EXPOSURE DURING PREGNANCY
     Dosage: MOTHER DOSE: 4 TO 8 MG Q8H
     Route: 064
  2. ONDANSETRON HYDROCHLORIDE. [Suspect]
     Active Substance: ONDANSETRON HYDROCHLORIDE
     Indication: FOETAL EXPOSURE DURING PREGNANCY
     Dosage: MOTHER DOSE: 8 MG
     Route: 064

REACTIONS (16)
  - Heart disease congenital [Unknown]
  - Abdominal discomfort [Unknown]
  - Dermatitis diaper [Unknown]
  - Ventricular septal defect [Unknown]
  - Pulmonary artery stenosis congenital [Unknown]
  - Haematochezia [Unknown]
  - Cardiac murmur [Unknown]
  - Left-to-right cardiac shunt [Unknown]
  - Neonatal tachypnoea [Unknown]
  - Torticollis [Unknown]
  - Cyanosis neonatal [Unknown]
  - Device breakage [Unknown]
  - Transposition of the great vessels [Unknown]
  - Atrial septal defect [Unknown]
  - Patent ductus arteriosus [Unknown]
  - Foetal exposure during pregnancy [Unknown]
